FAERS Safety Report 26155819 (Version 1)
Quarter: 2025Q4

REPORT INFORMATION
  Report Type: Spontaneous
  Country: EU (occurrence: EU)
  Receive Date: 20251215
  Receipt Date: 20251215
  Transmission Date: 20260117
  Serious: Yes (Life-Threatening, Hospitalization, Other)
  Sender: ALKEM
  Company Number: None

PATIENT
  Age: 40 Year
  Sex: Male
  Weight: 45 kg

DRUGS (8)
  1. TACROLIMUS [Suspect]
     Active Substance: TACROLIMUS
     Indication: Immunosuppressant drug therapy
     Dosage: UNK
     Route: 065
  2. EMPAGLIFLOZIN [Suspect]
     Active Substance: EMPAGLIFLOZIN
     Indication: Glycogen storage disease type I
     Dosage: 10 MILLIGRAM, QD (EVERY 24 HOURS)
     Route: 065
     Dates: start: 202201
  3. EMPAGLIFLOZIN [Suspect]
     Active Substance: EMPAGLIFLOZIN
     Dosage: 10 MILLIGRAM, BID (EVERY 12 HOURS) INCREASED DOSE
     Route: 065
  4. EMPAGLIFLOZIN [Suspect]
     Active Substance: EMPAGLIFLOZIN
     Dosage: 10 MILLIGRAM, BID (EVERY 24 HOURS) REDUCED DOSE
     Route: 065
  5. CYCLOSPORINE [Suspect]
     Active Substance: CYCLOSPORINE
     Indication: Immunosuppressant drug therapy
     Dosage: UNK (LOW DOSE)
     Route: 065
  6. PREDNISONE [Suspect]
     Active Substance: PREDNISONE
     Indication: Immunosuppressant drug therapy
     Dosage: UNK
     Route: 065
  7. ENALAPRIL [Concomitant]
     Active Substance: ENALAPRIL
     Indication: Product used for unknown indication
     Dosage: UNK
     Route: 065
  8. FEBUXOSTAT [Concomitant]
     Active Substance: FEBUXOSTAT
     Indication: Product used for unknown indication
     Dosage: UNK
     Route: 065

REACTIONS (14)
  - Chronic kidney disease [Recovering/Resolving]
  - Pneumonia [Recovering/Resolving]
  - Pneumococcal infection [Recovering/Resolving]
  - Haemolytic anaemia [Recovering/Resolving]
  - Neutropenia [Recovering/Resolving]
  - Septic shock [Recovering/Resolving]
  - Post transplant lymphoproliferative disorder [Recovering/Resolving]
  - Urinary tract infection [Recovering/Resolving]
  - Herpes virus infection [Recovering/Resolving]
  - Upper respiratory tract infection [Recovered/Resolved]
  - Disease recurrence [Recovering/Resolving]
  - Constipation [Recovered/Resolved]
  - Treatment noncompliance [Unknown]
  - Off label use [Unknown]

NARRATIVE: CASE EVENT DATE: 20230801
